FAERS Safety Report 7218708-1 (Version None)
Quarter: 2011Q1

REPORT INFORMATION
  Report Type: 
  Country: None (occurrence: None)
  Receive Date: 20110110
  Receipt Date: 20101028
  Transmission Date: 20110831
  Serious: No
  Sender: FDA-Public Use
  Company Number: US-ABBOTT-10P-163-0681987-00

PATIENT
  Sex: Female
  Weight: 64.468 kg

DRUGS (1)
  1. VICODIN [Suspect]
     Indication: BACK PAIN
     Dates: start: 20060101, end: 20060101

REACTIONS (2)
  - NAUSEA [None]
  - ABDOMINAL PAIN UPPER [None]
